FAERS Safety Report 14319263 (Version 3)
Quarter: 2021Q3

REPORT INFORMATION
  Report Type: Spontaneous
  Country: ES (occurrence: ES)
  Receive Date: 20171222
  Receipt Date: 20210723
  Transmission Date: 20211014
  Serious: Yes (Hospitalization, Other)
  Sender: FDA-Public Use
  Company Number: ES-BAUSCH-BL-2017-034767

PATIENT
  Age: 87 Year
  Sex: Male
  Weight: 87 kg

DRUGS (42)
  1. SIMVASTATIN. [Concomitant]
     Active Substance: SIMVASTATIN
     Indication: PRODUCT USED FOR UNKNOWN INDICATION
     Route: 065
  2. BRETARIS GENUAIR [Concomitant]
     Active Substance: ACLIDINIUM BROMIDE
     Dosage: DOSAGE FORM: INHALATION, 1 INHALATION
     Route: 055
  3. BILAXTEN [Concomitant]
     Active Substance: BILASTINE
     Route: 065
     Dates: end: 20170726
  4. SALMETEROL [Concomitant]
     Active Substance: SALMETEROL
     Indication: PRODUCT USED FOR UNKNOWN INDICATION
     Route: 055
  5. ZYLORIC [Concomitant]
     Active Substance: ALLOPURINOL
     Indication: PRODUCT USED FOR UNKNOWN INDICATION
     Route: 065
  6. ALLOPURINOL. [Suspect]
     Active Substance: ALLOPURINOL
     Dosage: DOSAGE FORM: UNSPECIFIED, ON ALLOPURINOL FOR 6 YEARS
     Route: 065
     Dates: start: 20110101
  7. LORATADINE. [Concomitant]
     Active Substance: LORATADINE
     Route: 048
     Dates: start: 20170726
  8. BILAXTEN [Concomitant]
     Active Substance: BILASTINE
     Indication: PRODUCT USED FOR UNKNOWN INDICATION
     Dosage: 20 MG,QD
     Route: 065
     Dates: start: 20170726, end: 20170726
  9. AUXINA A E [Concomitant]
     Indication: PRODUCT USED FOR UNKNOWN INDICATION
     Dosage: UNK
     Route: 048
     Dates: start: 201704, end: 20170726
  10. SALMETEROL [Concomitant]
     Active Substance: SALMETEROL
     Dosage: DOSAGE FORM: UNSPECIFIED, 1 INHALATION
     Route: 065
  11. SPIRONOLACTONE. [Concomitant]
     Active Substance: SPIRONOLACTONE
     Indication: PRODUCT USED FOR UNKNOWN INDICATION
     Dosage: DOSAGE FORM: UNSPECIFIED, TOTAL 1200 MG ONCE A DAY
     Route: 065
     Dates: start: 20170802
  12. DIPROGENTA [Concomitant]
     Active Substance: BETAMETHASONE DIPROPIONATE\GENTAMICIN SULFATE
     Route: 061
  13. ACICLOVIR [Suspect]
     Active Substance: ACYCLOVIR
     Indication: ERYTHRODERMIC PSORIASIS
     Route: 042
     Dates: start: 20170810
  14. FLUCONAZOLE. [Suspect]
     Active Substance: FLUCONAZOLE
     Indication: PRODUCT USED FOR UNKNOWN INDICATION
     Dosage: DOSAGE FORM: SOLUTION, ON ALLOPURINOL FOR 6 YEARS
     Route: 042
     Dates: start: 20170810
  15. STELARA [Suspect]
     Active Substance: USTEKINUMAB
     Indication: ERYTHRODERMIC PSORIASIS
     Route: 058
     Dates: start: 20170803, end: 20170803
  16. STELARA [Suspect]
     Active Substance: USTEKINUMAB
     Indication: PSORIASIS
     Route: 058
     Dates: start: 20170803, end: 20170803
  17. NEOTIGASON [Suspect]
     Active Substance: ACITRETIN
     Route: 065
     Dates: start: 20170728, end: 20170728
  18. LORATADINE. [Concomitant]
     Active Substance: LORATADINE
     Indication: PRODUCT USED FOR UNKNOWN INDICATION
     Route: 048
     Dates: start: 20170726
  19. CEFTRIAXONE. [Suspect]
     Active Substance: CEFTRIAXONE
     Indication: PRODUCT USED FOR UNKNOWN INDICATION
     Dosage: DOSAGE FORM: UNSPECIFIED
     Route: 030
     Dates: start: 20170801, end: 20170812
  20. ACICLOVIR [Suspect]
     Active Substance: ACYCLOVIR
     Indication: ERYTHRODERMIC PSORIASIS
     Route: 058
     Dates: start: 20170810
  21. DACORTIN [Concomitant]
     Active Substance: PREDNISONE
     Indication: PRODUCT USED FOR UNKNOWN INDICATION
     Route: 065
     Dates: start: 20170801, end: 20170801
  22. ALDACTONE [Concomitant]
     Active Substance: SPIRONOLACTONE
     Indication: PRODUCT USED FOR UNKNOWN INDICATION
     Route: 065
     Dates: end: 20170802
  23. AZITHROMYCIN ANHYDROUS. [Concomitant]
     Active Substance: AZITHROMYCIN ANHYDROUS
     Indication: PRODUCT USED FOR UNKNOWN INDICATION
     Dosage: DOSAGE FORM: UNSPECIFIED
     Route: 065
     Dates: start: 20170812, end: 20170812
  24. ALLOPURINOL. [Suspect]
     Active Substance: ALLOPURINOL
     Indication: HYPERURICAEMIA
     Dosage: ON ALLOPURINOL FOR 6 YEARS
     Route: 065
     Dates: start: 2011
  25. NOLOTIL [METAMIZOLE MAGNESIUM] [Suspect]
     Active Substance: METAMIZOLE MAGNESIUM
     Indication: PRODUCT USED FOR UNKNOWN INDICATION
     Dosage: DOSAGE FORM: UNSPECIFIED
     Route: 042
     Dates: start: 20170801
  26. OMNIC OCAS [Concomitant]
     Active Substance: TAMSULOSIN HYDROCHLORIDE
     Indication: PRODUCT USED FOR UNKNOWN INDICATION
     Route: 065
  27. JUNIPER OIL [Concomitant]
     Active Substance: HERBALS\JUNIPERUS COMMUNIS WHOLE
     Indication: PRODUCT USED FOR UNKNOWN INDICATION
     Dosage: DOSAGE FORM: UNSPECIFIED, BATHROOMS WITH JUNIPER OIL ONCE A DAY FOR 20 MINUTES.
     Route: 065
  28. BRETARIS GENUAIR [Concomitant]
     Active Substance: ACLIDINIUM BROMIDE
     Indication: PRODUCT USED FOR UNKNOWN INDICATION
     Route: 055
  29. PARACETAMOL [Concomitant]
     Active Substance: ACETAMINOPHEN
     Indication: PRODUCT USED FOR UNKNOWN INDICATION
     Dosage: 650 MG,Q12H
     Route: 065
  30. ACITRETIN. [Concomitant]
     Active Substance: ACITRETIN
     Route: 065
     Dates: start: 20170728, end: 20170728
  31. SEGURIL [Concomitant]
     Active Substance: FUROSEMIDE
     Indication: PRODUCT USED FOR UNKNOWN INDICATION
     Dosage: DOSAGE FORM: UNSPECIFIED, 1.5 (60 MG/ DAY)
     Route: 065
     Dates: start: 20170802, end: 20170802
  32. ENALAPRIL [Concomitant]
     Active Substance: ENALAPRIL
     Indication: PRODUCT USED FOR UNKNOWN INDICATION
     Route: 065
  33. NEOTIGASON [Suspect]
     Active Substance: ACITRETIN
     Indication: ERYTHRODERMIC PSORIASIS
     Route: 065
     Dates: start: 20170728, end: 20170728
  34. LISALGIL [Suspect]
     Active Substance: METAMIZOLE SODIUM
     Indication: PRODUCT USED FOR UNKNOWN INDICATION
     Dosage: DOSAGE FORM: UNSPECIFIED, TOTAL 1200 MG ONCE A DAY
     Route: 042
     Dates: start: 201708
  35. EUCERIN [Concomitant]
     Active Substance: ENSULIZOLE\EUCERIN\OCTINOXATE\OCTISALATE\TITANIUM DIOXIDE\ZINC OXIDE
     Indication: PRODUCT USED FOR UNKNOWN INDICATION
     Route: 065
  36. ACITRETIN. [Concomitant]
     Active Substance: ACITRETIN
     Indication: PRODUCT USED FOR UNKNOWN INDICATION
     Route: 065
     Dates: start: 20170728
  37. NOLOTIL [METAMIZOLE MAGNESIUM] [Suspect]
     Active Substance: METAMIZOLE MAGNESIUM
     Dosage: DOSAGE FORM: UNSPECIFIED
     Route: 042
     Dates: start: 20170801
  38. MONOLITUM [Concomitant]
     Active Substance: LANSOPRAZOLE
     Indication: PRODUCT USED FOR UNKNOWN INDICATION
     Route: 065
     Dates: start: 20170401
  39. DIPROGENTA [Concomitant]
     Active Substance: BETAMETHASONE DIPROPIONATE\GENTAMICIN SULFATE
     Indication: PRODUCT USED FOR UNKNOWN INDICATION
     Route: 061
  40. ACICLOVIR [Suspect]
     Active Substance: ACYCLOVIR
     Route: 042
     Dates: start: 20170810
  41. ACICLOVIR [Suspect]
     Active Substance: ACYCLOVIR
     Route: 042
     Dates: start: 20170810
  42. BETAMETHASONE W/CALCIPOTRIOL [Concomitant]
     Active Substance: BETAMETHASONE DIPROPIONATE\CALCIPOTRIENE HYDRATE
     Indication: PRODUCT USED FOR UNKNOWN INDICATION
     Route: 065
     Dates: start: 201704

REACTIONS (3)
  - Toxic epidermal necrolysis [Recovered/Resolved]
  - Oral candidiasis [Recovering/Resolving]
  - Fungal infection [Recovering/Resolving]

NARRATIVE: CASE EVENT DATE: 2017
